FAERS Safety Report 9159561 (Version 1)
Quarter: 2013Q1

REPORT INFORMATION
  Report Type: Spontaneous
  Country: US (occurrence: US)
  Receive Date: 20130313
  Receipt Date: 20130313
  Transmission Date: 20140127
  Serious: No
  Sender: FDA-Public Use
  Company Number: US-MYLANLABS-2012S1025616

PATIENT
  Age: 65 Year
  Sex: Female

DRUGS (5)
  1. PIOGLITAZONE [Suspect]
     Indication: DIABETES MELLITUS
     Route: 048
     Dates: start: 20121127, end: 20121211
  2. ANTIINFLAMMATORY AGENTS [Suspect]
     Indication: INFLAMMATION
     Route: 048
     Dates: start: 201211, end: 20121209
  3. CLARITIN /00917501/ [Concomitant]
     Indication: MULTIPLE ALLERGIES
     Route: 048
  4. NATURE THROID [Concomitant]
     Indication: HYPOTHYROIDISM
     Route: 048
  5. METFORMIN [Concomitant]
     Indication: DIABETES MELLITUS
     Route: 048

REACTIONS (2)
  - Pruritus [Not Recovered/Not Resolved]
  - Urticaria [Not Recovered/Not Resolved]
